FAERS Safety Report 24662970 (Version 2)
Quarter: 2024Q4

REPORT INFORMATION
  Report Type: Spontaneous
  Country: US (occurrence: US)
  Receive Date: 20241126
  Receipt Date: 20241128
  Transmission Date: 20250115
  Serious: Yes (Hospitalization, Other)
  Sender: RANBAXY
  Company Number: US-SUN PHARMACEUTICAL INDUSTRIES LTD-2024R1-480908

PATIENT
  Age: 24 Year
  Sex: Female

DRUGS (1)
  1. DEXAMETHASONE [Suspect]
     Active Substance: DEXAMETHASONE
     Indication: Atrioventricular block complete
     Dosage: UNK
     Route: 065

REACTIONS (4)
  - Ascites [Unknown]
  - Exposure during pregnancy [Unknown]
  - Pericardial effusion [Unknown]
  - Premature delivery [Unknown]
